FAERS Safety Report 6699828-7 (Version None)
Quarter: 2010Q2

REPORT INFORMATION
  Report Type: 
  Country: None (occurrence: None)
  Receive Date: 20100428
  Receipt Date: 20100225
  Transmission Date: 20101027
  Serious: No
  Sender: FDA-Public Use
  Company Number: A0846688A

PATIENT
  Age: 17 Year
  Sex: Male

DRUGS (1)
  1. LUXIQ [Suspect]
     Indication: DERMATOSIS
     Route: 061

REACTIONS (1)
  - ALOPECIA [None]
